FAERS Safety Report 15780205 (Version 1)
Quarter: 2019Q1

REPORT INFORMATION
  Report Type: Spontaneous
  Country: SE (occurrence: SE)
  Receive Date: 20190102
  Receipt Date: 20190102
  Transmission Date: 20190417
  Serious: Yes (Other)
  Sender: FDA-Public Use
  Company Number: SE-SUN PHARMACEUTICAL INDUSTRIES LTD-2018RR-194997

PATIENT
  Age: 76 Year
  Sex: Male
  Weight: 87 kg

DRUGS (3)
  1. FELODIPIN ORIFARM [Concomitant]
     Indication: PRODUCT USED FOR UNKNOWN INDICATION
     Dosage: ()
     Route: 065
  2. TROMBYL [Concomitant]
     Active Substance: ASPIRIN
     Indication: PRODUCT USED FOR UNKNOWN INDICATION
     Dosage: ()
     Route: 065
  3. ATORVASTATIN RANBAXY 40MG FILMDRAGERADE TABLETTER [Suspect]
     Active Substance: ATORVASTATIN
     Indication: LIPIDS
     Dosage: 40 MILLIGRAM, DAILY
     Route: 065
     Dates: start: 20180905

REACTIONS (4)
  - Back pain [Not Recovered/Not Resolved]
  - Myalgia [Not Recovered/Not Resolved]
  - Constipation [Not Recovered/Not Resolved]
  - Visual impairment [Not Recovered/Not Resolved]

NARRATIVE: CASE EVENT DATE: 201809
